FAERS Safety Report 9555639 (Version 1)
Quarter: 2013Q3

REPORT INFORMATION
  Report Type: Report from Study
  Country: BR (occurrence: BR)
  Receive Date: 20130926
  Receipt Date: 20130926
  Transmission Date: 20140515
  Serious: Yes (Death)
  Sender: FDA-Public Use
  Company Number: PHHY2013BR106976

PATIENT
  Sex: Male

DRUGS (1)
  1. TEGRETOL CR [Suspect]
     Dosage: 200 MG, UNK

REACTIONS (1)
  - Death [Fatal]
